FAERS Safety Report 5159820-0 (Version None)
Quarter: 2006Q4

REPORT INFORMATION
  Report Type: 
  Country: None (occurrence: None)
  Receive Date: 20061129
  Receipt Date: 20060122
  Transmission Date: 20070319
  Serious: No
  Sender: FDA-Public Use
  Company Number: US-GLAXOSMITHKLINE-A0590346A

PATIENT
  Sex: Female

DRUGS (2)
  1. WELLBUTRIN SR [Suspect]
     Dosage: 100MG PER DAY
     Route: 048
     Dates: start: 20051231, end: 20060120
  2. WELLBUTRIN XL [Suspect]
     Dosage: 150MG PER DAY
     Route: 048
     Dates: start: 20051231

REACTIONS (6)
  - DRY MOUTH [None]
  - IRRITABILITY [None]
  - MIDDLE EAR EFFUSION [None]
  - NAUSEA [None]
  - RASH [None]
  - TINNITUS [None]
